FAERS Safety Report 7455009-0 (Version None)
Quarter: 2011Q2

REPORT INFORMATION
  Report Type: 
  Country: None (occurrence: None)
  Receive Date: 20110503
  Receipt Date: 20110426
  Transmission Date: 20111010
  Serious: Yes (Other)
  Sender: FDA-Public Use
  Company Number: SE-BRISTOL-MYERS SQUIBB COMPANY-15555527

PATIENT
  Age: 64 Year
  Sex: Female

DRUGS (2)
  1. ORENCIA [Suspect]
     Indication: RHEUMATOID ARTHRITIS
     Dosage: INTRAVENOUS DOSAGE REGIMEN 750 MG WHEN NEEDED
     Route: 042
     Dates: start: 20100419, end: 20110209
  2. DIKLOFENAK [Concomitant]
     Dosage: DIKLOFENAK TABLET 50 MG

REACTIONS (1)
  - VASCULITIS [None]
